FAERS Safety Report 5622184-X (Version None)
Quarter: 2008Q1

REPORT INFORMATION
  Report Type: 
  Country: None (occurrence: None)
  Receive Date: 20080211
  Receipt Date: 20080207
  Transmission Date: 20080703
  Serious: Yes (Other)
  Sender: FDA-Public Use
  Company Number: IT-BRISTOL-MYERS SQUIBB COMPANY-13998281

PATIENT
  Age: 71 Year

DRUGS (4)
  1. CETUXIMAB [Suspect]
     Indication: COLON CANCER
     Dosage: CETUXIMAB 5MG/ML THE MOST RECENT INFUSION BEFORE ONSET OF EVENT  06NOV07
     Route: 041
     Dates: start: 20071106, end: 20071120
  2. OXALIPLATIN [Suspect]
     Indication: COLON CANCER
     Dosage: THE MOST RECENT INFUSION  BEFORE ONSET OF EVENT 06NOV07
     Route: 042
     Dates: start: 20071106
  3. FLUOROURACIL [Suspect]
     Indication: COLON CANCER
     Dosage: THE MOST RECENT INFUSION  BEFORE ONSET OF EVENT 5FU BOLUS ON 07NOV07 AND 5-FU ON 08NOV07
     Route: 042
     Dates: start: 20071106
  4. FOLINIC ACID [Suspect]
     Indication: COLON CANCER
     Dosage: THE MOST RECENT INFUSION BEFORE ONSET OF EVENT 07NOV07
     Route: 042
     Dates: start: 20071107

REACTIONS (1)
  - URINARY RETENTION [None]
